FAERS Safety Report 6327321-X (Version None)
Quarter: 2009Q3

REPORT INFORMATION
  Report Type: 
  Country: None (occurrence: None)
  Receive Date: 20090825
  Receipt Date: 20090813
  Transmission Date: 20100115
  Serious: Yes (Other)
  Sender: FDA-Public Use
  Company Number: US-WYE-H10583609

PATIENT
  Sex: Female
  Weight: 92.62 kg

DRUGS (8)
  1. PRISTIQ [Suspect]
     Indication: MAJOR DEPRESSION
     Route: 048
     Dates: start: 20090101
  2. PREDNISONE TAB [Concomitant]
     Indication: RADICULAR SYNDROME
     Dosage: UNKNOWN
     Route: 048
  3. FISH OIL, HYDROGENATED [Concomitant]
  4. K-DUR [Concomitant]
     Dosage: UNKNOWN
  5. VITAMIN B-12 [Concomitant]
  6. VITAMINS [Concomitant]
  7. VICODIN [Suspect]
     Indication: RADICULAR SYNDROME
     Dosage: UNKNOWN
     Route: 048
     Dates: start: 20090713, end: 20090701
  8. HYZAAR [Concomitant]
     Indication: HYPERTENSION
     Dosage: UNKNOWN
     Route: 048

REACTIONS (7)
  - CHILLS [None]
  - DIARRHOEA [None]
  - FATIGUE [None]
  - HYPERHIDROSIS [None]
  - MORBID THOUGHTS [None]
  - SOMNOLENCE [None]
  - SUICIDAL IDEATION [None]
